FAERS Safety Report 5726702-2 (Version None)
Quarter: 2008Q2

REPORT INFORMATION
  Report Type: 
  Country: None (occurrence: None)
  Receive Date: 20080502
  Receipt Date: 20080429
  Transmission Date: 20081010
  Serious: Yes (Other)
  Sender: FDA-Public Use
  Company Number: JP-SANOFI-SYNTHELABO-A01200804871

PATIENT
  Sex: Male

DRUGS (4)
  1. FLUOROURACIL [Suspect]
     Indication: RECTAL CANCER
     Dosage: UNK
  2. AVASTIN [Suspect]
     Indication: RECTAL CANCER
     Route: 041
     Dates: start: 20080303
  3. ISOVORIN [Suspect]
     Indication: RECTAL CANCER
     Dosage: UNK
  4. ELPLAT [Suspect]
     Indication: RECTAL CANCER
     Dosage: UNK
     Route: 042

REACTIONS (1)
  - ORCHITIS [None]
